FAERS Safety Report 21375421 (Version 1)
Quarter: 2022Q3

REPORT INFORMATION
  Report Type: Spontaneous
  Country: US (occurrence: US)
  Receive Date: 20220926
  Receipt Date: 20220926
  Transmission Date: 20221027
  Serious: No
  Sender: FDA-Public Use
  Company Number: US-TEVA-2022-US-2072977

PATIENT
  Age: 77 Year
  Sex: Male
  Weight: 78.02 kg

DRUGS (2)
  1. ALBUTEROL SULFATE [Suspect]
     Active Substance: ALBUTEROL SULFATE
     Indication: Product used for unknown indication
     Dosage: 1080 MICROGRAM DAILY; 2 INHALATIONS EVERY 4 HOURS SCHEDULED FOR 5 DAYS
     Route: 065
     Dates: start: 20220901, end: 20220903
  2. PAXLOVID [Suspect]
     Active Substance: NIRMATRELVIR\RITONAVIR
     Indication: COVID-19
     Dosage: STRENGTH: 300MG/100 MG, PAXLOVID 300 MG TAKE THREE 100 MG TABLETS IN THE MORNING AND EVENING FOR 5 D

REACTIONS (4)
  - Product after taste [Unknown]
  - Insomnia [Recovered/Resolved]
  - Somnolence [Unknown]
  - Product use in unapproved indication [Unknown]

NARRATIVE: CASE EVENT DATE: 20220901
